FAERS Safety Report 11139706 (Version 2)
Quarter: 2015Q3

REPORT INFORMATION
  Report Type: Report from Study
  Country: DE (occurrence: DE)
  Receive Date: 20150527
  Receipt Date: 20150706
  Transmission Date: 20151125
  Serious: Yes (Hospitalization)
  Sender: FDA-Public Use
  Company Number: DE-PFIZER INC-2015112291

PATIENT
  Age: 63 Year
  Sex: Female
  Weight: 78 kg

DRUGS (9)
  1. AGOMELATINE [Concomitant]
     Active Substance: AGOMELATINE
     Dosage: 25 MG, DAILY
     Dates: start: 20150312
  2. PANTOZOL [Concomitant]
     Active Substance: PANTOPRAZOLE SODIUM
     Dosage: 40 MG, DAILY
     Dates: start: 20150309
  3. LORAZEPAM. [Concomitant]
     Active Substance: LORAZEPAM
     Dosage: 1 MG, DAILY
  4. DEXAMETHASONE. [Suspect]
     Active Substance: DEXAMETHASONE
     Dosage: 40 MG, UNK
     Dates: start: 20150312, end: 20150315
  5. RITUXIMAB [Suspect]
     Active Substance: RITUXIMAB
     Dosage: 720 MG, UNK
     Dates: start: 20150309, end: 20150309
  6. CYTARABINE. [Suspect]
     Active Substance: CYTARABINE
     Dosage: 3850 MG, UNK
     Dates: start: 20150313, end: 20150313
  7. CEFUROXIM [Concomitant]
     Active Substance: CEFUROXIME
     Dosage: 500 MG, UNK
     Dates: start: 20150318
  8. CISPLATIN. [Suspect]
     Active Substance: CISPLATIN
     Dosage: 193 MG, UNK
     Dates: start: 20150312, end: 20150312
  9. TEMSIROLIMUS [Suspect]
     Active Substance: TEMSIROLIMUS
     Dosage: 25 MG/ INFUSION, CYCLIC (ON DAY 1 AND DAY 8 OF EACH CYCLE)
     Dates: start: 20150309

REACTIONS (2)
  - Mucosal inflammation [Recovered/Resolved]
  - Febrile bone marrow aplasia [Recovered/Resolved]

NARRATIVE: CASE EVENT DATE: 20150326
